FAERS Safety Report 8103101-X (Version None)
Quarter: 2012Q1

REPORT INFORMATION
  Report Type: 
  Country: None (occurrence: None)
  Receive Date: 20120127
  Receipt Date: 20120116
  Transmission Date: 20120608
  Serious: Yes (Other)
  Sender: FDA-Public Use
  Company Number: DSJ-2011-12092

PATIENT
  Sex: Male

DRUGS (8)
  1. METFORMIN HCL [Concomitant]
  2. ATORVASTATIN (ATORVASTATIN) (ATORVASTATIN) [Concomitant]
  3. GLIMEPIRIDE (GLIMEPIRIDE) (GLIMEPIRIDE) [Concomitant]
  4. SITAGLIPTIN (SITAGLIPTIN) (SITAGLIPTIN) [Concomitant]
  5. VITAMIN (VITAMINS NOS) (VITAMINS NOS) [Concomitant]
  6. AMLODIPINE BESYLATE AND OLMESARTAN MEDOXOMIL [Suspect]
     Indication: HYPERTENSION
     Dosage: 40/5 MG (1 IN 1 D). PER ORAL
     Route: 048
     Dates: start: 20110605
  7. AMLODIPINE BESYLATE AND OLMESARTAN MEDOXOMIL [Suspect]
     Indication: HYPERTENSION
     Dosage: 40/5 MG (1 IN 1 D). PER ORAL
     Route: 048
     Dates: start: 20081119, end: 20110501
  8. ACETYLSALICYLIC ACID SRT [Concomitant]

REACTIONS (5)
  - CATARACT [None]
  - DRUG INEFFECTIVE [None]
  - BLOOD PRESSURE SYSTOLIC INCREASED [None]
  - OEDEMA PERIPHERAL [None]
  - EYE DISORDER [None]
